FAERS Safety Report 11503436 (Version 2)
Quarter: 2016Q3

REPORT INFORMATION
  Report Type: Spontaneous
  Country: US (occurrence: US)
  Receive Date: 20150914
  Receipt Date: 20160915
  Transmission Date: 20161109
  Serious: No
  Sender: FDA-Public Use
  Company Number: US-ASTELLAS-2015US025205

PATIENT
  Sex: Male

DRUGS (7)
  1. XTANDI [Suspect]
     Active Substance: ENZALUTAMIDE
     Indication: PROSTATE CANCER
     Route: 065
     Dates: start: 20150424
  2. HYDROCODON [Interacting]
     Active Substance: HYDROCODONE
     Indication: PRODUCT USED FOR UNKNOWN INDICATION
     Dosage: UNK, EVERY 6 HOURS
     Route: 065
  3. HYDROCODON [Interacting]
     Active Substance: HYDROCODONE
     Dosage: UNK, EVERY 4 HOURS
     Route: 065
  4. XGEVA [Concomitant]
     Active Substance: DENOSUMAB
     Indication: PRODUCT USED FOR UNKNOWN INDICATION
     Dosage: UNK UNK, MONTHLY
     Route: 065
  5. MELOXICAN [Concomitant]
     Active Substance: MELOXICAM
     Indication: PRODUCT USED FOR UNKNOWN INDICATION
     Dosage: UNK UNK, UNKNOWN FREQ.
     Route: 065
  6. XTANDI [Interacting]
     Active Substance: ENZALUTAMIDE
     Indication: BONE CANCER
     Route: 065
  7. LUPRON [Concomitant]
     Active Substance: LEUPROLIDE ACETATE
     Indication: PRODUCT USED FOR UNKNOWN INDICATION
     Dosage: 1 EVERY SIX MONTH
     Route: 065

REACTIONS (4)
  - Poor quality sleep [Unknown]
  - Nausea [Recovering/Resolving]
  - Vomiting [Unknown]
  - Drug interaction [Unknown]
